FAERS Safety Report 17741304 (Version 1)
Quarter: 2020Q2

REPORT INFORMATION
  Report Type: Report from Study
  Country: EG (occurrence: EG)
  Receive Date: 20200504
  Receipt Date: 20200504
  Transmission Date: 20200714
  Serious: Yes (Hospitalization, Other)
  Sender: FDA-Public Use
  Company Number: NVSC2020EG116935

PATIENT
  Age: 73 Year
  Sex: Male

DRUGS (12)
  1. HYDREA [Suspect]
     Active Substance: HYDROXYUREA
     Indication: CHRONIC MYELOID LEUKAEMIA
     Dosage: 2 DF, QD
     Route: 065
     Dates: start: 2005, end: 2008
  2. EXAMIDE [Concomitant]
     Indication: PRODUCT USED FOR UNKNOWN INDICATION
     Dosage: 1 DF, Q48H
     Route: 065
     Dates: start: 20200112
  3. ZYLORIC [Concomitant]
     Active Substance: ALLOPURINOL
     Indication: PRODUCT USED FOR UNKNOWN INDICATION
     Dosage: 1 DF, QD (STRENGTH: 100)
     Route: 065
     Dates: start: 20200112
  4. MOTILIUM [Concomitant]
     Active Substance: DOMPERIDONE
     Indication: PRODUCT USED FOR UNKNOWN INDICATION
     Dosage: 3 DF, QD
     Route: 065
     Dates: start: 20200112
  5. GLIVEC [Suspect]
     Active Substance: IMATINIB MESYLATE
     Indication: CHRONIC MYELOID LEUKAEMIA
     Dosage: 1 DF, QD (STOPPED AFTER ABOUT A YEAR)
     Route: 065
     Dates: start: 2008
  6. SPRYCEL [Suspect]
     Active Substance: DASATINIB
     Indication: CHRONIC MYELOID LEUKAEMIA
     Dosage: 1 DF, QD
     Route: 065
     Dates: start: 2011, end: 2012
  7. TASIGNA [Suspect]
     Active Substance: NILOTINIB
     Dosage: 4 DF, QD
     Route: 065
     Dates: start: 2012
  8. COLI URINAL [Concomitant]
     Indication: PRODUCT USED FOR UNKNOWN INDICATION
     Dosage: QD (1 TABLE SPOONFUL ON 0.5 CUP OF)
     Route: 065
     Dates: start: 20200406
  9. TASIGNA [Suspect]
     Active Substance: NILOTINIB
     Indication: CHRONIC MYELOID LEUKAEMIA
     Dosage: 4 DF, QD
     Route: 065
     Dates: start: 2009, end: 2011
  10. ZURCAL [Concomitant]
     Active Substance: PANTOPRAZOLE SODIUM
     Indication: PRODUCT USED FOR UNKNOWN INDICATION
     Dosage: 1 DF, QD (OR CONTROLOC 20 MG 1 TAB BEFORE BREAKFAST)
     Route: 065
     Dates: start: 20200112
  11. AMARYL [Concomitant]
     Active Substance: GLIMEPIRIDE
     Indication: TYPE 2 DIABETES MELLITUS
     Dosage: 1 DF, QD
     Route: 065
  12. ALPHINTERN [Concomitant]
     Indication: PRODUCT USED FOR UNKNOWN INDICATION
     Dosage: 3 DF, QD
     Route: 065
     Dates: start: 20200406

REACTIONS (10)
  - Blood creatinine increased [Recovered/Resolved]
  - Rash [Recovered/Resolved]
  - Pyuria [Recovered/Resolved]
  - Product dose omission [Recovered/Resolved]
  - Cataract [Recovered/Resolved]
  - Type 2 diabetes mellitus [Recovering/Resolving]
  - Thrombosis [Recovering/Resolving]
  - Hyperbilirubinaemia [Recovered/Resolved]
  - Product availability issue [Recovered/Resolved]
  - Hypersensitivity [Recovered/Resolved]

NARRATIVE: CASE EVENT DATE: 2011
